FAERS Safety Report 16039763 (Version 2)
Quarter: 2019Q1

REPORT INFORMATION
  Report Type: Spontaneous
  Country: GB (occurrence: GB)
  Receive Date: 20190306
  Receipt Date: 20190308
  Transmission Date: 20190418
  Serious: Yes (Other)
  Sender: FDA-Public Use
  Company Number: GB-ABBVIE-10P-167-0802178-00

PATIENT
  Age: 54 Year
  Sex: Male

DRUGS (2)
  1. ORLISTAT. [Concomitant]
     Active Substance: ORLISTAT
     Indication: OVERWEIGHT
     Dosage: DALILY DOSE 360 MG
     Route: 048
     Dates: start: 20050601, end: 20060601
  2. TESTOGEL [Suspect]
     Active Substance: TESTOSTERONE
     Indication: BLOOD TESTOSTERONE DECREASED
     Dosage: DAILY DOSE:  UNKNOWN
     Route: 061
     Dates: start: 20051101, end: 20060701

REACTIONS (1)
  - Arthralgia [Recovered/Resolved]

NARRATIVE: CASE EVENT DATE: 20060401
